FAERS Safety Report 4881540-8 (Version None)
Quarter: 2006Q1

REPORT INFORMATION
  Report Type: 
  Country: None (occurrence: None)
  Receive Date: 20060116
  Receipt Date: 20060103
  Transmission Date: 20060701
  Serious: Yes (Disabling)
  Sender: FDA-Public Use
  Company Number: FR-GLAXOSMITHKLINE-B0405839A

PATIENT
  Age: 1 Day
  Sex: Male

DRUGS (2)
  1. DEROXAT [Suspect]
     Dosage: 20MG PER DAY
     Dates: end: 20031030
  2. RISPERDAL [Suspect]
     Dosage: .5MG TWICE PER DAY
     Dates: end: 20031030

REACTIONS (3)
  - CARDIAC MURMUR [None]
  - CONGENITAL GENITOURINARY ABNORMALITY [None]
  - DRUG EXPOSURE DURING PREGNANCY [None]
